FAERS Safety Report 21647501 (Version 6)
Quarter: 2023Q1

REPORT INFORMATION
  Report Type: Report from Study
  Country: US (occurrence: US)
  Receive Date: 20221128
  Receipt Date: 20230216
  Transmission Date: 20230418
  Serious: Yes (Hospitalization, Other)
  Sender: FDA-Public Use
  Company Number: US-BoehringerIngelheim-2022-BI-202328

PATIENT
  Age: 68 Year
  Sex: Male

DRUGS (2)
  1. OFEV [Suspect]
     Active Substance: NINTEDANIB
     Indication: Idiopathic pulmonary fibrosis
     Route: 048
     Dates: start: 20220906, end: 20221109
  2. OFEV [Suspect]
     Active Substance: NINTEDANIB
     Route: 048
     Dates: start: 20221112

REACTIONS (21)
  - COVID-19 pneumonia [Not Recovered/Not Resolved]
  - Epistaxis [Not Recovered/Not Resolved]
  - Head injury [Unknown]
  - Asthenia [Unknown]
  - Weight decreased [Unknown]
  - Dehydration [Unknown]
  - Diarrhoea [Unknown]
  - Dysphonia [Unknown]
  - Faeces discoloured [Unknown]
  - Epistaxis [Recovered/Resolved]
  - Fall [Unknown]
  - Fatigue [Unknown]
  - Influenza [Unknown]
  - Aphonia [Not Recovered/Not Resolved]
  - Loss of consciousness [Unknown]
  - Fall [Unknown]
  - Hunger [Unknown]
  - Increased tendency to bruise [Unknown]
  - Asthenia [Unknown]
  - Poor quality sleep [Unknown]
  - Melaena [Recovered/Resolved]

NARRATIVE: CASE EVENT DATE: 20221101
